FAERS Safety Report 11691556 (Version 2)
Quarter: 2016Q3

REPORT INFORMATION
  Report Type: Spontaneous
  Country: US (occurrence: US)
  Receive Date: 20151102
  Receipt Date: 20160817
  Transmission Date: 20161109
  Serious: No
  Sender: FDA-Public Use
  Company Number: US-PFIZER INC-2015366397

PATIENT
  Sex: Female

DRUGS (1)
  1. HYDROCORTISONE ACETATE. [Suspect]
     Active Substance: HYDROCORTISONE ACETATE
     Dosage: UNK

REACTIONS (2)
  - Withdrawal syndrome [Unknown]
  - Pain [Unknown]
